FAERS Safety Report 16798077 (Version 1)
Quarter: 2019Q3

REPORT INFORMATION
  Report Type: Report from Study
  Country: CO (occurrence: CO)
  Receive Date: 20190912
  Receipt Date: 20190912
  Transmission Date: 20191005
  Serious: Yes (Hospitalization, Other)
  Sender: FDA-Public Use
  Company Number: CO-ASTELLAS-2019US035987

PATIENT
  Age: 70 Year
  Sex: Male
  Weight: 65 kg

DRUGS (5)
  1. B COMPLEX                          /00212701/ [Concomitant]
     Active Substance: NIACINAMIDE\PYRIDOXINE\RIBOFLAVIN\THIAMINE
     Indication: PRODUCT USED FOR UNKNOWN INDICATION
     Dosage: UNK UNK, UNKNOWN FREQ.
     Route: 048
  2. TACROLIMUS. [Suspect]
     Active Substance: TACROLIMUS
     Indication: RENAL TRANSPLANT
     Route: 048
     Dates: start: 20140516, end: 2018
  3. MYCOPHENOLATE [Concomitant]
     Active Substance: MYCOPHENOLIC ACID
     Indication: PRODUCT USED FOR UNKNOWN INDICATION
     Dosage: UNK UNK, UNKNOWN FREQ.
     Route: 048
  4. GLUCERNA [Suspect]
     Active Substance: AMINO ACIDS\DEXTROSE\ELECTROLYTES NOS\SOYBEAN OIL\VITAMINS
     Indication: PRODUCT USED FOR UNKNOWN INDICATION
     Dosage: UNK UNK, UNKNOWN FREQ.
     Route: 048
  5. TACROLIMUS. [Suspect]
     Active Substance: TACROLIMUS
     Dosage: 1.5 MG (1 CAPSULE OF 1 MG AND 1 CAPSULE OF 0.5 MG), ONCE DAILY
     Route: 048
     Dates: start: 2018

REACTIONS (8)
  - Autonomic nervous system imbalance [Unknown]
  - Coma [Recovered/Resolved]
  - Weight decreased [Unknown]
  - Diarrhoea [Unknown]
  - Blindness [Unknown]
  - Toxicity to various agents [Unknown]
  - Deafness [Unknown]
  - Coordination abnormal [Unknown]

NARRATIVE: CASE EVENT DATE: 20181227
